FAERS Safety Report 21273453 (Version 2)
Quarter: 2022Q3

REPORT INFORMATION
  Report Type: Other
  Country: RU (occurrence: RU)
  Receive Date: 20220831
  Receipt Date: 20220930
  Transmission Date: 20221026
  Serious: Yes (Other)
  Sender: FDA-Public Use
  Company Number: None

PATIENT
  Age: 72 Year
  Sex: Female

DRUGS (4)
  1. OMNIPAQUE [Suspect]
     Active Substance: IOHEXOL
     Indication: Diagnostic procedure
     Dosage: 100 ML, SINGLE
     Route: 042
     Dates: start: 20220723, end: 20220723
  2. OMNIPAQUE [Suspect]
     Active Substance: IOHEXOL
     Indication: Cerebrovascular accident
  3. MAGNESIUM SULFATE [Concomitant]
     Active Substance: MAGNESIUM SULFATE
     Dosage: UNK
  4. CITICOLINE [Concomitant]
     Active Substance: CITICOLINE
     Dosage: 1000 MG

REACTIONS (4)
  - Hyperthermia [Recovering/Resolving]
  - Dizziness [Recovering/Resolving]
  - Injection site thrombosis [Recovering/Resolving]
  - Injection site rash [Recovering/Resolving]

NARRATIVE: CASE EVENT DATE: 20220723
